FAERS Safety Report 7401919-X (Version None)
Quarter: 2011Q2

REPORT INFORMATION
  Report Type: 
  Country: None (occurrence: None)
  Receive Date: 20110408
  Receipt Date: 20110401
  Transmission Date: 20111010
  Serious: Yes (Hospitalization)
  Sender: FDA-Public Use
  Company Number: SE-JNJFOC-20110301799

PATIENT
  Sex: Female

DRUGS (3)
  1. IPREN [Suspect]
     Indication: COUGH
     Route: 054
  2. IPREN [Suspect]
     Indication: PYREXIA
     Route: 054
  3. IPREN [Suspect]
     Indication: FLUID INTAKE REDUCED
     Route: 054

REACTIONS (3)
  - CIRCULATORY COLLAPSE [None]
  - SYNCOPE [None]
  - ANAPHYLACTIC REACTION [None]
